FAERS Safety Report 20216733 (Version 1)
Quarter: 2021Q4

REPORT INFORMATION
  Report Type: Spontaneous
  Country: US (occurrence: None)
  Receive Date: 20211221
  Receipt Date: 20211221
  Transmission Date: 20220303
  Serious: Yes (Other)
  Sender: FDA-Public Use
  Company Number: None

PATIENT
  Age: 58 Year
  Sex: Female
  Weight: 87 kg

DRUGS (2)
  1. ADALIMUMAB [Suspect]
     Active Substance: ADALIMUMAB
     Indication: Cough
     Dates: start: 20131030, end: 20210916
  2. ADALIMUMAB [Suspect]
     Active Substance: ADALIMUMAB
     Indication: Interstitial lung disease

REACTIONS (4)
  - Lung infiltration [None]
  - Lung opacity [None]
  - Wheezing [None]
  - Interstitial lung disease [None]

NARRATIVE: CASE EVENT DATE: 20210916
